FAERS Safety Report 8001063-7 (Version None)
Quarter: 2011Q4

REPORT INFORMATION
  Report Type: 
  Country: None (occurrence: None)
  Receive Date: 20111222
  Receipt Date: 20111026
  Transmission Date: 20120403
  Serious: No
  Sender: FDA-Public Use
  Company Number: US-GLAXOSMITHKLINE-A0951284A

PATIENT
  Age: 51 Year
  Sex: Male

DRUGS (3)
  1. TOPAMAX [Concomitant]
  2. FLONASE [Suspect]
     Indication: MULTIPLE ALLERGIES
     Route: 045
  3. PRILOSEC [Concomitant]

REACTIONS (1)
  - PAROSMIA [None]
